FAERS Safety Report 7730099-6 (Version None)
Quarter: 2011Q3

REPORT INFORMATION
  Report Type: 
  Country: None (occurrence: None)
  Receive Date: 20110901
  Receipt Date: 20110901
  Transmission Date: 20111222
  Serious: Yes (Other)
  Sender: FDA-Public Use
  Company Number: None

PATIENT
  Sex: Female
  Weight: 93.441 kg

DRUGS (1)
  1. ACTOS [Suspect]
     Indication: TYPE 2 DIABETES MELLITUS
     Dosage: 30MG QD PO
     Route: 048
     Dates: start: 20110301, end: 20110601

REACTIONS (10)
  - OROPHARYNGEAL PAIN [None]
  - RASH [None]
  - MYALGIA [None]
  - MUSCLE SPASMS [None]
  - WEIGHT INCREASED [None]
  - CHEST DISCOMFORT [None]
  - OEDEMA PERIPHERAL [None]
  - PRURITUS [None]
  - JOINT SWELLING [None]
  - ABDOMINAL PAIN UPPER [None]
